FAERS Safety Report 4883800-3 (Version None)
Quarter: 2005Q4

REPORT INFORMATION
  Report Type: 
  Country: None (occurrence: None)
  Receive Date: 20051201
  Receipt Date: 20050926
  Transmission Date: 20060501
  Serious: No
  Sender: FDA-Public Use
  Company Number: 2005PV002495

PATIENT
  Age: 45 Year
  Sex: Male
  Weight: 136.0791 kg

DRUGS (3)
  1. BYETTA [Suspect]
     Indication: DIABETES MELLITUS NON-INSULIN-DEPENDENT
     Dosage: 10 MCG; BID; SC
     Route: 058
     Dates: start: 20050924
  2. ACTOS [Concomitant]
  3. GLIPIZIDE [Concomitant]

REACTIONS (3)
  - DECREASED APPETITE [None]
  - HOT FLUSH [None]
  - VOMITING [None]
